FAERS Safety Report 5319758-2 (Version None)
Quarter: 2007Q2

REPORT INFORMATION
  Report Type: 
  Country: None (occurrence: None)
  Receive Date: 20070503
  Receipt Date: 20070423
  Transmission Date: 20071010
  Serious: No
  Sender: FDA-Public Use
  Company Number: 20073565

PATIENT
  Sex: Male

DRUGS (2)
  1. INTRATHECAL (BACLOFEN INJECTION) [Suspect]
     Indication: MUSCLE SPASTICITY
     Dosage: DAILY, INTRATHECAL
     Route: 037
  2. COMPOUNDED BACLOFEN [Concomitant]

REACTIONS (5)
  - CATHETER RELATED COMPLICATION [None]
  - CATHETER SITE PAIN [None]
  - DRUG INEFFECTIVE [None]
  - GRANULOMA [None]
  - PAIN [None]
